FAERS Safety Report 7609247 (Version 2)
Quarter: 2013Q3

REPORT INFORMATION
  Report Type: Spontaneous
  Country: US (occurrence: US)
  Receive Date: 20100928
  Receipt Date: 20130905
  Transmission Date: 20140515
  Serious: No
  Sender: FDA-Public Use
  Company Number: US-BIOGENIDEC-2010BI032773

PATIENT
  Sex: Male

DRUGS (1)
  1. TYSABRI [Suspect]
     Indication: MULTIPLE SCLEROSIS
     Route: 042
     Dates: start: 20100401, end: 20130220

REACTIONS (7)
  - Hypoaesthesia [Recovered/Resolved]
  - Gait disturbance [Recovered/Resolved]
  - Balance disorder [Unknown]
  - Back pain [Recovered/Resolved]
  - Melanocytic naevus [Unknown]
  - Visual impairment [Unknown]
  - Multiple sclerosis relapse [Recovered/Resolved]
